FAERS Safety Report 17254017 (Version 2)
Quarter: 2020Q1

REPORT INFORMATION
  Report Type: Spontaneous
  Country: US (occurrence: US)
  Receive Date: 20200109
  Receipt Date: 20200224
  Transmission Date: 20200409
  Serious: Yes (Hospitalization, Other)
  Sender: FDA-Public Use
  Company Number: US-JNJFOC-20200112185

PATIENT
  Age: 68 Year
  Sex: Male

DRUGS (16)
  1. MAGNESIUM                          /00454301/ [Concomitant]
     Route: 048
  2. CHOLECALCIFEROL [Concomitant]
     Active Substance: CHOLECALCIFEROL
     Dosage: 5000 UNITS BY MOTH EVERY OTHER DAY.
     Route: 048
  3. PHAZYME                            /00164001/ [Concomitant]
     Route: 048
  4. OMEPRAZOLE. [Concomitant]
     Active Substance: OMEPRAZOLE
     Route: 048
  5. HYDROCORTISONE. [Concomitant]
     Active Substance: HYDROCORTISONE
     Route: 048
  6. POLYETHYLENE GLYCOL 3350. [Concomitant]
     Active Substance: POLYETHYLENE GLYCOL 3350
     Route: 048
  7. POTASSIUM CHLORIDE. [Concomitant]
     Active Substance: POTASSIUM CHLORIDE
     Route: 048
  8. MAGNESIUM HYDROXIDE. [Concomitant]
     Active Substance: MAGNESIUM HYDROXIDE
     Dosage: 400MG/5ML, TAKE 30 L BY MOUTH DAILY AS NEEDED.
     Route: 048
  9. VENLAFAXINE [Concomitant]
     Active Substance: VENLAFAXINE HYDROCHLORIDE
     Route: 048
  10. ACETAMINOPHEN. [Concomitant]
     Active Substance: ACETAMINOPHEN
  11. ALPRAZOLAM. [Concomitant]
     Active Substance: ALPRAZOLAM
     Route: 048
  12. BENZOCAINE. [Concomitant]
     Active Substance: BENZOCAINE
     Route: 065
  13. BISACODYL. [Concomitant]
     Active Substance: BISACODYL
     Dosage: INSERT 10 MG RECTALLY NIGHTLY AS NEEDED FOR CONSTIPATION.
     Route: 065
  14. LEVOTHYROXINE. [Concomitant]
     Active Substance: LEVOTHYROXINE
     Dosage: 75 MCG
     Route: 048
  15. METOLAZONE. [Concomitant]
     Active Substance: METOLAZONE
     Route: 048
  16. ZYTIGA [Suspect]
     Active Substance: ABIRATERONE ACETATE
     Indication: PROSTATE CANCER METASTATIC
     Dosage: 18 MONTHS AGO
     Route: 048
     Dates: start: 2018, end: 20200108

REACTIONS (5)
  - Hospitalisation [Unknown]
  - Renal failure [Recovering/Resolving]
  - Endocarditis [Recovering/Resolving]
  - Cardiac failure [Recovering/Resolving]
  - Prostatic specific antigen increased [Recovering/Resolving]

NARRATIVE: CASE EVENT DATE: 20190113
